FAERS Safety Report 8838080 (Version 2)
Quarter: 2013Q2

REPORT INFORMATION
  Report Type: Report from Study
  Country: US (occurrence: US)
  Receive Date: 20121012
  Receipt Date: 20130528
  Transmission Date: 20140414
  Serious: Yes (Death)
  Sender: FDA-Public Use
  Company Number: US-ROCHE-1144842

PATIENT
  Sex: 0

DRUGS (6)
  1. PEG-INTERFERON ALFA 2A [Suspect]
     Indication: HEPATITIS C
     Dosage: AT WEEKS 0,4,8
     Route: 065
  2. PEG-INTERFERON ALFA 2A [Suspect]
     Route: 065
  3. PEG-INTERFERON ALFA 2A [Suspect]
     Route: 065
  4. RIBAVIRIN [Suspect]
     Indication: HEPATITIS C
     Route: 065
  5. RIBAVIRIN [Suspect]
     Route: 065
  6. RIBAVIRIN [Suspect]
     Route: 065

REACTIONS (1)
  - Sepsis [Fatal]
